FAERS Safety Report 16411513 (Version 3)
Quarter: 2019Q3

REPORT INFORMATION
  Report Type: Spontaneous
  Country: US (occurrence: US)
  Receive Date: 20190610
  Receipt Date: 20190923
  Transmission Date: 20191004
  Serious: No
  Sender: FDA-Public Use
  Company Number: US-TAKEDA-2019TUS034873

PATIENT
  Sex: Female

DRUGS (3)
  1. NINLARO [Suspect]
     Active Substance: IXAZOMIB CITRATE
     Indication: PLASMA CELL MYELOMA
     Dosage: 3 MILLIGRAM
     Route: 048
     Dates: start: 10190213
  2. DEXAMETHASONE. [Suspect]
     Active Substance: DEXAMETHASONE
     Indication: PRODUCT USED FOR UNKNOWN INDICATION
     Dosage: UNK
     Route: 065
  3. REVLIMID [Concomitant]
     Active Substance: LENALIDOMIDE
     Dosage: 2.5 MILLIGRAM

REACTIONS (8)
  - Blood potassium decreased [Unknown]
  - Fatigue [Unknown]
  - Dyspepsia [Not Recovered/Not Resolved]
  - Hypotension [Unknown]
  - Nausea [Unknown]
  - Flatulence [Not Recovered/Not Resolved]
  - Weight increased [Not Recovered/Not Resolved]
  - Abdominal distension [Not Recovered/Not Resolved]
